FAERS Safety Report 7634449-0 (Version None)
Quarter: 2011Q3

REPORT INFORMATION
  Report Type: 
  Country: None (occurrence: None)
  Receive Date: 20110725
  Receipt Date: 20110721
  Transmission Date: 20111222
  Serious: Yes (Life-Threatening, Other)
  Sender: FDA-Public Use
  Company Number: PHHY2010DE82093

PATIENT
  Sex: Female
  Weight: 78 kg

DRUGS (8)
  1. LEVOTHYROXINE SODIUM [Concomitant]
  2. PANTOPRAZOLE [Concomitant]
  3. COTRIM [Concomitant]
  4. TASIGNA [Suspect]
     Dosage: 400 MG, BID
     Route: 048
     Dates: start: 20100906
  5. ACYCLOVIR [Concomitant]
  6. DRONABINOL [Concomitant]
     Dosage: UNK
  7. VOMEX [Concomitant]
  8. TAVOR (FLUCONAZOLE) [Concomitant]

REACTIONS (5)
  - HYPONATRAEMIA [None]
  - DRUG INTOLERANCE [None]
  - NEUROLOGICAL SYMPTOM [None]
  - DIARRHOEA [None]
  - NEPHROPATHY TOXIC [None]
